FAERS Safety Report 8514813-8 (Version None)
Quarter: 2012Q3

REPORT INFORMATION
  Report Type: 
  Country: None (occurrence: None)
  Receive Date: 20120717
  Receipt Date: 20120716
  Transmission Date: 20120928
  Serious: Yes (Hospitalization)
  Sender: FDA-Public Use
  Company Number: US-ROCHE-1057967

PATIENT
  Sex: Female

DRUGS (4)
  1. COPEGUS [Suspect]
     Indication: HEPATITIS C
     Route: 048
     Dates: start: 20120402
  2. COPEGUS [Suspect]
     Dosage: BRAND UNKNOWN
     Route: 048
  3. PEGASYS [Suspect]
     Indication: HEPATITIS C
     Dosage: PROCLICK
     Route: 058
     Dates: start: 20120402
  4. TELAPREVIR [Suspect]
     Indication: HEPATITIS C
     Dosage: 2 TABLETS
     Dates: start: 20120402

REACTIONS (11)
  - HAEMORRHOIDS [None]
  - FATIGUE [None]
  - HAEMOGLOBIN [None]
  - HAEMOGLOBIN DECREASED [None]
  - DIZZINESS [None]
  - TREMOR [None]
  - SKIN INFECTION [None]
  - HALLUCINATION [None]
  - BLOOD GLUCOSE INCREASED [None]
  - ANAEMIA [None]
  - RASH PRURITIC [None]
